FAERS Safety Report 25532697 (Version 1)
Quarter: 2025Q3

REPORT INFORMATION
  Report Type: Spontaneous
  Country: US (occurrence: US)
  Receive Date: 20250709
  Receipt Date: 20250709
  Transmission Date: 20251021
  Serious: No
  Sender: TAKEDA
  Company Number: US-TAKEDA-2025TUS059962

PATIENT
  Age: 19 Year
  Sex: Female

DRUGS (4)
  1. ENTYVIO [Suspect]
     Active Substance: VEDOLIZUMAB
     Indication: Colitis ulcerative
     Dosage: 108 MILLIGRAM, Q2WEEKS
     Dates: start: 202503
  2. ENTYVIO [Suspect]
     Active Substance: VEDOLIZUMAB
  3. ENTYVIO [Suspect]
     Active Substance: VEDOLIZUMAB
  4. ENTYVIO [Suspect]
     Active Substance: VEDOLIZUMAB

REACTIONS (3)
  - Abdominal pain [Unknown]
  - Abdominal pain upper [Unknown]
  - Nausea [Unknown]
